FAERS Safety Report 8617076 (Version 2)
Quarter: 2014Q1

REPORT INFORMATION
  Report Type: Spontaneous
  Country: US (occurrence: None)
  Receive Date: 20120323
  Receipt Date: 20140306
  Transmission Date: 20141002
  Serious: Yes (Hospitalization, Other)
  Sender: FDA-Public Use
  Company Number: 163-21880-11122565

PATIENT
  Age: 66 Year
  Sex: Female
  Weight: 63.5 kg

DRUGS (9)
  1. REVLIMID [Suspect]
     Indication: PLASMA CELL MYELOMA
     Dosage: 25 MG, DAILY X 21/28 DAYS, PO
     Route: 048
     Dates: start: 20091210
  2. ZOLPIDEM TARTRATE (ZOLPIDEM TARTRATE)(TABLETS) [Concomitant]
  3. DEXAMETHASONE(DEXAMETHASONE)TABLETS) [Concomitant]
  4. GABAPETNIN [Concomitant]
  5. CITALOPRAM [Concomitant]
  6. COENZYME Q10 (UBIDECARENONE) [Concomitant]
  7. ALPHA-LIPOIC ACID (THIOCTIC ACID) [Concomitant]
  8. CALCIUM + D (OS-CAL)(TABLETS) [Concomitant]
  9. HYDROCODONE-ACETAMINOPHEN(VICODIN)(UKNOWN) [Concomitant]

REACTIONS (7)
  - Thrombosis [None]
  - Pneumonia [None]
  - Pulmonary thrombosis [None]
  - Full blood count decreased [None]
  - Diarrhoea [None]
  - Abdominal pain upper [None]
  - Pruritus [None]
